FAERS Safety Report 6696018-9 (Version None)
Quarter: 2010Q2

REPORT INFORMATION
  Report Type: 
  Country: None (occurrence: None)
  Receive Date: 20100426
  Receipt Date: 20100413
  Transmission Date: 20101027
  Serious: Yes (Hospitalization, Other)
  Sender: FDA-Public Use
  Company Number: PHEH2006US08865

PATIENT
  Sex: Female
  Weight: 57.142 kg

DRUGS (16)
  1. ZOMETA [Suspect]
     Indication: MULTIPLE MYELOMA
     Dosage: UNK, UNK
     Dates: start: 20031001
  2. PROCRIT [Concomitant]
     Indication: ANAEMIA
     Dosage: 30 UNITS, TWICE A MONTH
     Dates: start: 20031001
  3. PRILOSEC [Concomitant]
  4. PREDNISONE [Concomitant]
  5. PROTONIX [Concomitant]
  6. MICRO-K [Concomitant]
  7. COSOPT [Concomitant]
  8. SODIUM CHLORIDE [Concomitant]
  9. XANAX [Concomitant]
  10. MYLANTA [Concomitant]
  11. TYLENOL-500 [Concomitant]
  12. AMBIEN [Concomitant]
  13. SENOKOT [Concomitant]
  14. MAGNESIUM OXIDE [Concomitant]
  15. K-DUR [Concomitant]
  16. MIRALAX [Concomitant]

REACTIONS (44)
  - ABDOMINAL PAIN UPPER [None]
  - ACTINOMYCOSIS [None]
  - ANAEMIA OF CHRONIC DISEASE [None]
  - ANXIETY [None]
  - ATELECTASIS [None]
  - BACTERIAL TEST POSITIVE [None]
  - BIOPSY BONE ABNORMAL [None]
  - BONE DEBRIDEMENT [None]
  - BONE DISORDER [None]
  - CHEST PAIN [None]
  - CONSTIPATION [None]
  - DECREASED APPETITE [None]
  - DIARRHOEA [None]
  - DIVERTICULUM INTESTINAL [None]
  - DYSPNOEA [None]
  - EPISTAXIS [None]
  - FATIGUE [None]
  - GASTROENTERITIS [None]
  - GASTROINTESTINAL HAEMORRHAGE [None]
  - GINGIVAL BLEEDING [None]
  - HAEMORRHAGE [None]
  - HEPATIC CYST [None]
  - HIATUS HERNIA [None]
  - HYPOAESTHESIA [None]
  - HYPOKALAEMIA [None]
  - IMPAIRED HEALING [None]
  - INJURY [None]
  - MALAISE [None]
  - MASS [None]
  - MOUTH HAEMORRHAGE [None]
  - MOUTH ULCERATION [None]
  - MUSCULAR WEAKNESS [None]
  - NAUSEA [None]
  - NEURITIS [None]
  - OESOPHAGEAL DISORDER [None]
  - OSTEONECROSIS [None]
  - PAIN [None]
  - PARAESTHESIA [None]
  - SCOLIOSIS [None]
  - SPINAL OSTEOARTHRITIS [None]
  - THROMBOCYTOPENIA [None]
  - URINARY TRACT INFECTION [None]
  - UROSEPSIS [None]
  - VOMITING [None]
